FAERS Safety Report 7565237-1 (Version None)
Quarter: 2011Q2

REPORT INFORMATION
  Report Type: 
  Country: None (occurrence: None)
  Receive Date: 20110622
  Receipt Date: 20110606
  Transmission Date: 20111010
  Serious: Yes (Hospitalization, Other)
  Sender: FDA-Public Use
  Company Number: US-AMGEN-USASP2011027191

PATIENT
  Age: 76 Year
  Sex: Female

DRUGS (23)
  1. ALLOPURINOL [Concomitant]
     Dosage: 100 MG, QD
     Route: 048
  2. LORTAB [Concomitant]
     Dosage: 7.5 MG, UNK
     Route: 048
  3. NEURONTIN [Concomitant]
     Dosage: 300 MG, Q12H
     Route: 048
  4. METHOTREXATE [Concomitant]
     Dosage: UNK
     Dates: end: 20080101
  5. AMBIEN [Concomitant]
     Dosage: 10 MG, PRN
     Route: 048
  6. FUROSEMIDE [Concomitant]
     Dosage: 20 MG, QD
     Route: 048
  7. PRAVASTATIN                        /00880402/ [Concomitant]
     Dosage: 20 MG, UNK
     Route: 048
  8. VITAMIN D                          /00318501/ [Concomitant]
     Dosage: 50000 UNIT, QWK
     Route: 048
  9. FUROSEMIDE [Concomitant]
     Dosage: 40 MG, UNK
     Route: 048
  10. MOBIC [Concomitant]
     Dosage: UNK UNK, PRN
  11. ENBREL [Suspect]
     Indication: RHEUMATOID ARTHRITIS
     Dosage: 50 MG, QWK
     Dates: start: 19990401
  12. SYMBICORT [Concomitant]
     Dosage: UNK
  13. ARAVA [Concomitant]
     Dosage: UNK
     Dates: start: 20090101, end: 20090101
  14. GOLD [Concomitant]
     Dosage: UNK
  15. CALCITONIN SALMON [Concomitant]
     Dosage: 200 UNIT, QD
     Route: 045
  16. DEXILANT [Concomitant]
     Dosage: 60 MG, QD
     Route: 048
  17. OSCAL                              /00108001/ [Concomitant]
     Dosage: 500 UNK, Q12H
     Route: 048
  18. KLOR-CON M20 [Concomitant]
     Dosage: 20 MEQ, QD
     Route: 048
  19. METOPROLOL                         /00376903/ [Concomitant]
     Dosage: 12.5 MG, QD
     Route: 048
  20. MINOCYCLINE                        /00232402/ [Concomitant]
     Dosage: 100 MG, Q12H
     Route: 048
     Dates: start: 20100601, end: 20110329
  21. PENTOXIFYLLINE [Concomitant]
     Dosage: 400 MG, Q12H
     Route: 048
  22. PLAQUENIL [Concomitant]
     Dosage: UNK
  23. PREDNISONE [Concomitant]
     Dosage: UNK

REACTIONS (19)
  - PELVIC FRACTURE [None]
  - GASTROINTESTINAL STOMA COMPLICATION [None]
  - FURUNCLE [None]
  - FALL [None]
  - OSTEOPOROSIS [None]
  - UPPER RESPIRATORY TRACT INFECTION [None]
  - INCISION SITE INFECTION [None]
  - GASTROOESOPHAGEAL REFLUX DISEASE [None]
  - MYCOBACTERIUM MARINUM INFECTION [None]
  - ATYPICAL MYCOBACTERIAL INFECTION [None]
  - DIVERTICULAR PERFORATION [None]
  - DIABETES MELLITUS [None]
  - DIARRHOEA [None]
  - DIVERTICULITIS [None]
  - RHEUMATOID ARTHRITIS [None]
  - NODULE [None]
  - BACK PAIN [None]
  - WEIGHT DECREASED [None]
  - BACTERIAL INFECTION [None]
